FAERS Safety Report 24207654 (Version 2)
Quarter: 2024Q3

REPORT INFORMATION
  Report Type: Spontaneous
  Country: JP (occurrence: JP)
  Receive Date: 20240814
  Receipt Date: 20240826
  Transmission Date: 20241017
  Serious: Yes (Other)
  Sender: GENMAB
  Company Number: JP-GENMAB-2024-02869

PATIENT
  Age: 84 Year
  Sex: Female

DRUGS (1)
  1. EPKINLY [Suspect]
     Active Substance: EPCORITAMAB-BYSP
     Indication: Diffuse large B-cell lymphoma refractory
     Dosage: UNK, EPKINLY WAS ADMINISTERED UP TO CYCLE 1, AND THEN IT WAS COMPLETED.
     Route: 065

REACTIONS (2)
  - Delirium [Unknown]
  - Immune effector cell-associated neurotoxicity syndrome [Unknown]
